FAERS Safety Report 6558826-4 (Version None)
Quarter: 2010Q1

REPORT INFORMATION
  Report Type: 
  Country: None (occurrence: None)
  Receive Date: 20100129
  Receipt Date: 20100118
  Transmission Date: 20100710
  Serious: Yes (Other)
  Sender: FDA-Public Use
  Company Number: PHEH2009US17904

PATIENT
  Sex: Male
  Weight: 69.841 kg

DRUGS (5)
  1. EXTAVIA [Suspect]
     Indication: MULTIPLE SCLEROSIS
     Dosage: 0.0625 MG, QOD
     Route: 058
     Dates: start: 20091210
  2. FLUOXETINE [Concomitant]
     Dosage: 20 MG, BID
  3. AMITRIPTYLINE HCL [Concomitant]
     Dosage: 100MG, HS
  4. OXYBUTYNIN CHLORIDE [Concomitant]
     Dosage: 15 MG, BID
  5. BACLOFEN [Concomitant]
     Dosage: 10 MG, BID

REACTIONS (14)
  - ABNORMAL BEHAVIOUR [None]
  - AFFECTIVE DISORDER [None]
  - AGGRESSION [None]
  - CONDITION AGGRAVATED [None]
  - DECREASED APPETITE [None]
  - DEPRESSION [None]
  - DYSPNOEA [None]
  - FATIGUE [None]
  - FEELING ABNORMAL [None]
  - HEART RATE INCREASED [None]
  - LETHARGY [None]
  - MENTAL DISORDER [None]
  - NERVOUSNESS [None]
  - SNEEZING [None]
